FAERS Safety Report 7026977-6 (Version None)
Quarter: 2010Q4

REPORT INFORMATION
  Report Type: 
  Country: None (occurrence: None)
  Receive Date: 20101004
  Receipt Date: 20100923
  Transmission Date: 20110411
  Serious: Yes (Hospitalization)
  Sender: FDA-Public Use
  Company Number: DE-CVT-100600

PATIENT

DRUGS (10)
  1. RANEXA [Suspect]
     Indication: ANGINA PECTORIS
     Dosage: 750 MG, QD
     Route: 048
     Dates: start: 20100923
  2. SIMVASTATIN [Suspect]
     Indication: METABOLIC SYNDROME
     Dosage: 20 MG, QD
     Route: 048
     Dates: end: 20100801
  3. RAMIPRIL CT [Concomitant]
  4. PENTALONG 50 [Concomitant]
  5. ASPIRIN [Concomitant]
  6. NEBIVOLOL [Concomitant]
  7. GLIMEPIRIDE [Concomitant]
  8. METFORMIN STADA [Concomitant]
  9. ALLOPURINOL [Concomitant]
  10. SYMBICORT [Concomitant]

REACTIONS (1)
  - PANCREATITIS [None]
